FAERS Safety Report 6853819-1 (Version None)
Quarter: 2010Q3

REPORT INFORMATION
  Report Type: 
  Country: None (occurrence: None)
  Receive Date: 20100717
  Receipt Date: 20071216
  Transmission Date: 20110219
  Serious: Yes (Other)
  Sender: FDA-Public Use
  Company Number: US-PFIZER INC-2007106930

PATIENT
  Sex: Female
  Weight: 46.818 kg

DRUGS (6)
  1. CHANTIX [Suspect]
     Indication: SMOKING CESSATION THERAPY
     Route: 048
     Dates: start: 20071207
  2. PREMPRO [Concomitant]
     Indication: CARDIAC DISORDER
  3. LEVOXYL [Concomitant]
     Indication: THYROID DISORDER
  4. ALPRAZOLAM [Concomitant]
     Indication: PANIC ATTACK
  5. EFFEXOR [Concomitant]
     Indication: DEPRESSION
  6. VITAMINS [Concomitant]

REACTIONS (5)
  - DECREASED APPETITE [None]
  - DYSPNOEA [None]
  - FATIGUE [None]
  - NAUSEA [None]
  - WEIGHT DECREASED [None]
